FAERS Safety Report 6381698-8 (Version None)
Quarter: 2009Q3

REPORT INFORMATION
  Report Type: 
  Country: None (occurrence: None)
  Receive Date: 20090930
  Receipt Date: 20090917
  Transmission Date: 20100115
  Serious: Yes (Other)
  Sender: FDA-Public Use
  Company Number: PHHY2009JP30313

PATIENT
  Sex: Female
  Weight: 59 kg

DRUGS (11)
  1. ZOMETA [Suspect]
     Indication: METASTASES TO BONE
     Dosage: 4 MG
     Route: 042
     Dates: start: 20070308, end: 20090702
  2. DECADRON                                /CAN/ [Concomitant]
     Indication: METASTASES TO BONE
     Dosage: 2 MG, UNK
     Route: 048
     Dates: start: 20090507, end: 20090710
  3. TAXANES [Concomitant]
  4. CYCLOPHOSPHAMIDE [Concomitant]
     Indication: METASTASES TO BONE
     Dosage: 500 MG, UNK
     Route: 042
     Dates: start: 20050614, end: 20051110
  5. FLUOROURACIL [Concomitant]
     Indication: METASTASES TO BONE
     Dosage: 500 MG, UNK
     Route: 042
     Dates: start: 20050614, end: 20051110
  6. EPIRUBICIN HYDROCHLORIDE [Concomitant]
     Indication: METASTASES TO BONE
     Dosage: 50 MG, UNK
     Route: 042
     Dates: start: 20050614, end: 20051110
  7. AROMASIN [Concomitant]
     Indication: METASTASES TO BONE
     Dosage: 25 MG, UNK
     Route: 048
     Dates: start: 20051202, end: 20060713
  8. TS 1 [Concomitant]
     Indication: METASTASES TO BONE
     Dosage: 100 MG, UNK
     Route: 048
     Dates: start: 20060714, end: 20080131
  9. FEMARA [Concomitant]
     Indication: METASTASES TO BONE
     Dosage: 25 MG, UNK
     Dates: start: 20080208, end: 20080918
  10. DOCETAXEL [Concomitant]
     Indication: METASTASES TO BONE
     Dosage: 100 MG, UNK
     Route: 042
     Dates: start: 20080925
  11. DECADRON [Concomitant]
     Indication: METASTASES TO BONE
     Dosage: 2 MG, UNK
     Route: 048
     Dates: start: 20090507, end: 20090710

REACTIONS (2)
  - BONE DISORDER [None]
  - OSTEONECROSIS [None]
